FAERS Safety Report 7078165-5 (Version None)
Quarter: 2010Q4

REPORT INFORMATION
  Report Type: 
  Country: None (occurrence: None)
  Receive Date: 20101101
  Receipt Date: 20101101
  Transmission Date: 20110411
  Serious: Yes (Disabling)
  Sender: FDA-Public Use
  Company Number: None

PATIENT
  Age: 80 Year
  Sex: Male
  Weight: 96.1626 kg

DRUGS (1)
  1. ACTOS [Suspect]
     Dosage: 1-TABLET DAILY
     Dates: start: 20100126, end: 20100721

REACTIONS (2)
  - BALANCE DISORDER [None]
  - WALKING AID USER [None]
